FAERS Safety Report 9449378 (Version 2)
Quarter: 2013Q3

REPORT INFORMATION
  Report Type: Spontaneous
  Country: US (occurrence: US)
  Receive Date: 20130809
  Receipt Date: 20130916
  Transmission Date: 20140515
  Serious: Yes (Hospitalization)
  Sender: FDA-Public Use
  Company Number: US-009507513-1307USA016813

PATIENT
  Age: 26 Year
  Sex: Female

DRUGS (3)
  1. FOLLISTIM [Suspect]
     Indication: INFERTILITY
     Dosage: 300 UNITS DAILY A TOTAL DOSE OF 17 INTERNATIONAL UNITS
  2. GONADOTROPIN, CHORIONIC [Suspect]
     Route: 030
  3. INHIBITOR OF APOPTOSIS PROTEIN ANTAGONIST (UNSPECIFIED) [Concomitant]

REACTIONS (1)
  - Ovarian hyperstimulation syndrome [Recovering/Resolving]
